FAERS Safety Report 9377307 (Version 6)
Quarter: 2014Q2

REPORT INFORMATION
  Report Type: Spontaneous
  Country: US (occurrence: US)
  Receive Date: 20130701
  Receipt Date: 20140414
  Transmission Date: 20141212
  Serious: Yes (Hospitalization, Other)
  Sender: FDA-Public Use
  Company Number: US-BIOGENIDEC-2013BI056110

PATIENT
  Age: 58 Year
  Sex: Female

DRUGS (3)
  1. TYSABRI [Suspect]
     Indication: MULTIPLE SCLEROSIS
     Route: 042
     Dates: start: 20080122, end: 20080814
  2. TYSABRI [Suspect]
     Indication: MULTIPLE SCLEROSIS
     Route: 042
     Dates: start: 20130509, end: 20130509
  3. IVIG [Concomitant]
     Indication: MULTIPLE SCLEROSIS

REACTIONS (3)
  - Intraductal proliferative breast lesion [Recovered/Resolved]
  - Opportunistic infection [Unknown]
  - Post procedural infection [Recovered/Resolved]
